FAERS Safety Report 24749672 (Version 2)
Quarter: 2025Q1

REPORT INFORMATION
  Report Type: Spontaneous
  Country: US (occurrence: US)
  Receive Date: 20241218
  Receipt Date: 20250112
  Transmission Date: 20250409
  Serious: No
  Sender: BIOGEN
  Company Number: US-BIOGEN-2024BI01293954

PATIENT
  Sex: Female

DRUGS (1)
  1. QALSODY [Suspect]
     Active Substance: TOFERSEN
     Indication: Product used for unknown indication
     Route: 050

REACTIONS (2)
  - Post lumbar puncture syndrome [Unknown]
  - Back pain [Unknown]

NARRATIVE: CASE EVENT DATE: 20241210
